FAERS Safety Report 24699091 (Version 1)
Quarter: 2024Q4

REPORT INFORMATION
  Report Type: Spontaneous
  Country: US (occurrence: US)
  Receive Date: 20241205
  Receipt Date: 20241205
  Transmission Date: 20250114
  Serious: No
  Sender: ROCHE
  Company Number: US-ROCHE-10000148601

PATIENT
  Age: 46 Year
  Sex: Female

DRUGS (1)
  1. ACTEMRA ACTPEN [Suspect]
     Active Substance: TOCILIZUMAB
     Indication: Rheumatoid arthritis
     Dosage: EVERY OTHER WEEK.?STRENGTH: 162MG/0.9ML
     Route: 058

REACTIONS (2)
  - Drug hypersensitivity [Unknown]
  - Urticaria [Unknown]
